FAERS Safety Report 12240608 (Version 1)
Quarter: 2016Q2

REPORT INFORMATION
  Report Type: Spontaneous
  Country: KR (occurrence: KR)
  Receive Date: 20160406
  Receipt Date: 20160406
  Transmission Date: 20160815
  Serious: Yes (Hospitalization)
  Sender: FDA-Public Use
  Company Number: KR-AMGEN-KORCT2016042288

PATIENT
  Age: 81 Year
  Sex: Male
  Weight: 62 kg

DRUGS (12)
  1. RITUXIMAB [Suspect]
     Active Substance: RITUXIMAB
     Dosage: 626 / MG
     Route: 042
     Dates: start: 20160304, end: 20160304
  2. DOXORUBICIN [Suspect]
     Active Substance: DOXORUBICIN
     Indication: NON-HODGKIN^S LYMPHOMA
     Dosage: UNK
     Route: 042
     Dates: start: 20160211, end: 20160211
  3. CYCLOPHOSPHAMIDE. [Suspect]
     Active Substance: CYCLOPHOSPHAMIDE
     Dosage: 939 / MG
     Route: 042
     Dates: start: 20160304, end: 20160304
  4. PREDNISOLONE. [Suspect]
     Active Substance: PREDNISOLONE
     Indication: NON-HODGKIN^S LYMPHOMA
     Dosage: 100 / MG
     Route: 048
     Dates: start: 20160211, end: 20160211
  5. RITUXIMAB [Suspect]
     Active Substance: RITUXIMAB
     Indication: NON-HODGKIN^S LYMPHOMA
     Dosage: 626 / MG
     Route: 042
     Dates: start: 20160211, end: 20160211
  6. VINCRISTINE [Suspect]
     Active Substance: VINCRISTINE
     Indication: NON-HODGKIN^S LYMPHOMA
     Dosage: 2 / MG
     Route: 042
     Dates: start: 20160211, end: 20160211
  7. VINCRISTINE [Suspect]
     Active Substance: VINCRISTINE
     Dosage: 2 / MG
     Route: 042
     Dates: start: 20160304, end: 20160304
  8. CYCLOPHOSPHAMIDE. [Suspect]
     Active Substance: CYCLOPHOSPHAMIDE
     Indication: NON-HODGKIN^S LYMPHOMA
     Dosage: 939 / MG
     Route: 042
     Dates: start: 20160211, end: 20160211
  9. G-LASTA [Suspect]
     Active Substance: PEGFILGRASTIM
     Indication: FEBRILE NEUTROPENIA
     Dosage: 6 MG, 3X/WEEK
     Route: 058
     Dates: start: 20160212, end: 20160212
  10. G-LASTA [Suspect]
     Active Substance: PEGFILGRASTIM
     Dosage: 6 MG, 3X/WEEK
     Route: 058
     Dates: start: 20160305, end: 20160305
  11. DOXORUBICIN [Suspect]
     Active Substance: DOXORUBICIN
     Dosage: 62 / MG
     Route: 042
     Dates: start: 20160304, end: 20160304
  12. PREDNISOLONE. [Suspect]
     Active Substance: PREDNISOLONE
     Dosage: 100 / MG
     Route: 048
     Dates: start: 20160304, end: 20160304

REACTIONS (1)
  - Febrile neutropenia [Recovered/Resolved]

NARRATIVE: CASE EVENT DATE: 20160312
